FAERS Safety Report 5426948-7 (Version None)
Quarter: 2007Q3

REPORT INFORMATION
  Report Type: 
  Country: None (occurrence: None)
  Receive Date: 20070731
  Receipt Date: 20070423
  Transmission Date: 20080115
  Serious: No
  Sender: FDA-Public Use
  Company Number: US200704005252

PATIENT
  Age: 57 Year
  Sex: Female

DRUGS (5)
  1. BYETTA [Suspect]
     Indication: TYPE 2 DIABETES MELLITUS
     Dosage: 5 UG, 2/D SUBCUTANEOUS, 10 UG, 2/D SUBCUTANEOUS
     Route: 058
     Dates: start: 20070201, end: 20070411
  2. BYETTA [Suspect]
     Indication: TYPE 2 DIABETES MELLITUS
     Dosage: 5 UG, 2/D SUBCUTANEOUS, 10 UG, 2/D SUBCUTANEOUS
     Route: 058
     Dates: start: 20070412
  3. METFORMIN HCL [Concomitant]
  4. ACTOS [Concomitant]
  5. VYTORIN [Concomitant]

REACTIONS (5)
  - BLOOD GLUCOSE INCREASED [None]
  - INJECTION SITE BRUISING [None]
  - INJECTION SITE PAIN [None]
  - NAUSEA [None]
  - VOMITING [None]
